FAERS Safety Report 8600523-5 (Version None)
Quarter: 2012Q3

REPORT INFORMATION
  Report Type: 
  Country: None (occurrence: None)
  Receive Date: 20120808
  Receipt Date: 20120808
  Transmission Date: 20120928
  Serious: No
  Sender: FDA-Public Use
  Company Number: None

PATIENT
  Sex: Female
  Weight: 53.0709 kg

DRUGS (1)
  1. CLINDAMYCIN [Suspect]
     Indication: ORAL SURGERY
     Dosage: 150 MG 2 EA / 3X DAILY ORAL
     Route: 048
     Dates: start: 20120522, end: 20120531

REACTIONS (2)
  - ABDOMINAL PAIN UPPER [None]
  - DIARRHOEA [None]
